FAERS Safety Report 5284525-5 (Version None)
Quarter: 2007Q2

REPORT INFORMATION
  Report Type: 
  Country: None (occurrence: None)
  Receive Date: 20070403
  Receipt Date: 20070328
  Transmission Date: 20071010
  Serious: Yes (Disabling)
  Sender: FDA-Public Use
  Company Number: US-GLAXOSMITHKLINE-A0645041A

PATIENT
  Sex: Male

DRUGS (2)
  1. VALTREX [Suspect]
     Indication: HERPES SIMPLEX
     Dosage: 2G CYCLIC
     Route: 048
  2. ALCOHOL [Suspect]

REACTIONS (3)
  - ABNORMAL BEHAVIOUR [None]
  - DRUG INTERACTION [None]
  - LOSS OF CONSCIOUSNESS [None]
